FAERS Safety Report 11529566 (Version 1)
Quarter: 2015Q3

REPORT INFORMATION
  Report Type: Report from Study
  Country: DE (occurrence: DE)
  Receive Date: 20150921
  Receipt Date: 20150921
  Transmission Date: 20151125
  Serious: Yes (Other)
  Sender: FDA-Public Use
  Company Number: DE-BIOGENIDEC-2015BI124079

PATIENT
  Sex: Female
  Weight: 82 kg

DRUGS (3)
  1. HUMALOG FOR INSULIN PUMP [Concomitant]
     Indication: BALANCE DISORDER
     Route: 058
     Dates: start: 20040520
  2. TECFIDERA [Suspect]
     Active Substance: DIMETHYL FUMARATE
     Indication: MULTIPLE SCLEROSIS
     Route: 048
     Dates: start: 20140303
  3. BISOBETA [Concomitant]
     Indication: BALANCE DISORDER
     Route: 048
     Dates: start: 20090915

REACTIONS (2)
  - Limb injury [Recovered/Resolved]
  - Fall [Recovered/Resolved]
